FAERS Safety Report 25110847 (Version 2)
Quarter: 2025Q3

REPORT INFORMATION
  Report Type: Report from Study
  Country: US (occurrence: US)
  Receive Date: 20250324
  Receipt Date: 20250728
  Transmission Date: 20251021
  Serious: Yes (Hospitalization, Other)
  Sender: TAKEDA
  Company Number: US-TAKEDA-2024TUS113506

PATIENT
  Age: 53 Year
  Sex: Male

DRUGS (4)
  1. BRIGATINIB [Suspect]
     Active Substance: BRIGATINIB
     Indication: Lung neoplasm malignant
  2. BRIGATINIB [Suspect]
     Active Substance: BRIGATINIB
     Indication: Metastases to liver
  3. BRIGATINIB [Suspect]
     Active Substance: BRIGATINIB
     Indication: Cholangiocarcinoma
  4. BRIGATINIB [Suspect]
     Active Substance: BRIGATINIB
     Dosage: 30 MILLIGRAM, QD
     Dates: start: 20240824

REACTIONS (7)
  - Seizure [Recovered/Resolved]
  - Memory impairment [Unknown]
  - Bone pain [Unknown]
  - Drug intolerance [Unknown]
  - Off label use [Unknown]
  - Back pain [Unknown]
  - Headache [Unknown]

NARRATIVE: CASE EVENT DATE: 20250308
